FAERS Safety Report 23596096 (Version 3)
Quarter: 2024Q2

REPORT INFORMATION
  Report Type: Spontaneous
  Country: US (occurrence: US)
  Receive Date: 20240305
  Receipt Date: 20240507
  Transmission Date: 20240715
  Serious: Yes (Other)
  Sender: FDA-Public Use
  Company Number: US-PFIZER INC-202300284670

PATIENT
  Age: 11 Year
  Sex: Male
  Weight: 28.12 kg

DRUGS (4)
  1. OXBRYTA [Suspect]
     Active Substance: VOXELOTOR
     Indication: Sickle cell anaemia with crisis
     Dosage: 900 MG, 1X/DAY
     Route: 048
     Dates: start: 202306
  2. FOLIC ACID [Concomitant]
     Active Substance: FOLIC ACID
     Indication: Sickle cell disease
     Dosage: 1 MG, 1X/DAY
  3. HYDROCODONE [Concomitant]
     Active Substance: HYDROCODONE
     Indication: Pain
     Dosage: 90 ML
  4. ACETAMINOPHEN\HYDROCODONE [Concomitant]
     Active Substance: ACETAMINOPHEN\HYDROCODONE
     Indication: Pain
     Dosage: 7.5-3254/15 ML SOLUTION

REACTIONS (2)
  - Drug ineffective [Unknown]
  - Haemoglobin decreased [Not Recovered/Not Resolved]

NARRATIVE: CASE EVENT DATE: 20240101
